FAERS Safety Report 24937851 (Version 3)
Quarter: 2025Q1

REPORT INFORMATION
  Report Type: Spontaneous
  Country: JP (occurrence: JP)
  Receive Date: 20250206
  Receipt Date: 20250226
  Transmission Date: 20250409
  Serious: Yes (Death, Hospitalization, Other)
  Sender: JOHNSON AND JOHNSON
  Company Number: JP-JNJFOC-20250201727

PATIENT
  Age: 31 Year
  Sex: Female
  Weight: 43.0 kg

DRUGS (21)
  1. EPOPROSTENOL [Suspect]
     Active Substance: EPOPROSTENOL
     Indication: Product used for unknown indication
     Dosage: DOSE UNKNOWN
     Route: 042
     Dates: start: 20241228, end: 20241228
  2. EPOPROSTENOL [Suspect]
     Active Substance: EPOPROSTENOL
     Dosage: DOSE UNKNOWN
     Route: 042
     Dates: start: 20241230, end: 20241230
  3. EPOPROSTENOL [Suspect]
     Active Substance: EPOPROSTENOL
     Dosage: DOSE UNKNOWN
     Route: 042
     Dates: start: 20250101, end: 20250101
  4. EPOPROSTENOL [Suspect]
     Active Substance: EPOPROSTENOL
     Dosage: DOSE UNKNOWN
     Route: 042
     Dates: start: 20250102, end: 20250102
  5. EPOPROSTENOL [Suspect]
     Active Substance: EPOPROSTENOL
     Dosage: DOSE UNKNOWN
     Route: 042
     Dates: start: 20250103, end: 20250103
  6. EPOPROSTENOL [Suspect]
     Active Substance: EPOPROSTENOL
     Dosage: DOSE UNKNOWN
     Route: 042
     Dates: start: 20250104, end: 20250104
  7. EPOPROSTENOL [Suspect]
     Active Substance: EPOPROSTENOL
     Dosage: DOSE UNKNOWN
     Route: 042
     Dates: start: 20250105, end: 20250105
  8. EPOPROSTENOL [Suspect]
     Active Substance: EPOPROSTENOL
     Dosage: DOSE UNKNOWN
     Route: 042
     Dates: start: 20250108, end: 20250108
  9. OPSUMIT [Suspect]
     Active Substance: MACITENTAN
     Indication: Pulmonary arterial hypertension
     Route: 048
     Dates: start: 20241225
  10. HEPARIN CALCIUM [Suspect]
     Active Substance: HEPARIN CALCIUM
     Indication: Lung assist device therapy
     Dosage: DOSE UNKNOWN
     Route: 065
  11. LOPERAMIDE HYDROCHLORIDE [Suspect]
     Active Substance: LOPERAMIDE HYDROCHLORIDE
     Indication: Product used for unknown indication
     Route: 065
  12. NAUZELIN [Concomitant]
     Active Substance: DOMPERIDONE
  13. LOXOPROFEN SODIUM [Concomitant]
     Active Substance: LOXOPROFEN SODIUM
  14. BETAHISTINE MESILATE [Concomitant]
     Active Substance: BETAHISTINE MESILATE
  15. XYZAL [Concomitant]
     Active Substance: LEVOCETIRIZINE DIHYDROCHLORIDE
  16. REBAMIPIDE [Concomitant]
     Active Substance: REBAMIPIDE
  17. LEVOMEPROMAZINE [Concomitant]
     Active Substance: LEVOMEPROMAZINE
  18. DEXTROMETHORPHAN HYDROBROMIDE [Concomitant]
     Active Substance: DEXTROMETHORPHAN HYDROBROMIDE
  19. DIETARY SUPPLEMENT\PROBIOTICS [Concomitant]
     Active Substance: DIETARY SUPPLEMENT\PROBIOTICS NOS
  20. MOSAPRIDE CITRATE [Concomitant]
     Active Substance: MOSAPRIDE CITRATE
     Route: 065
  21. ADEMPAS [Concomitant]
     Active Substance: RIOCIGUAT
     Dates: start: 20250105

REACTIONS (3)
  - Anaemia [Fatal]
  - Pulmonary congestion [Unknown]
  - Blood pressure decreased [Unknown]

NARRATIVE: CASE EVENT DATE: 20241229
